FAERS Safety Report 7238086-1 (Version None)
Quarter: 2011Q1

REPORT INFORMATION
  Report Type: 
  Country: None (occurrence: None)
  Receive Date: 20110121
  Receipt Date: 20110120
  Transmission Date: 20110831
  Serious: Yes (Other)
  Sender: FDA-Public Use
  Company Number: B0695079A

PATIENT
  Sex: Female

DRUGS (2)
  1. AUGMENTIN [Suspect]
     Indication: PRODUCT USED FOR UNKNOWN INDICATION
     Dosage: 1UNIT SINGLE DOSE
     Route: 042
     Dates: start: 20091101, end: 20091101
  2. SYMBICORT [Concomitant]
     Indication: ASTHMA
     Route: 065

REACTIONS (5)
  - BLOOD PRESSURE DECREASED [None]
  - PRURITUS [None]
  - RESPIRATORY DISORDER [None]
  - LOSS OF CONSCIOUSNESS [None]
  - ANAPHYLACTIC REACTION [None]
